FAERS Safety Report 4398482-7 (Version None)
Quarter: 2004Q3

REPORT INFORMATION
  Report Type: 
  Country: None (occurrence: None)
  Receive Date: 20040714
  Receipt Date: 20040714
  Transmission Date: 20050211
  Serious: Yes (Hospitalization)
  Sender: FDA-Public Use
  Company Number: None

PATIENT
  Age: 47 Year
  Sex: Female
  Weight: 84.8226 kg

DRUGS (16)
  1. METHADONE HCL [Suspect]
     Indication: PAIN
     Dosage: CHRONIC
  2. FLEXERIL [Suspect]
     Indication: PAIN
     Dosage: CHRONIC
  3. ADVAIR DISKUS 100/50 [Concomitant]
  4. NEXIUM [Concomitant]
  5. STARLIX [Concomitant]
  6. HUMALOG [Concomitant]
  7. LANTUS [Concomitant]
  8. ASPIRIN [Concomitant]
  9. VALPROIC ACID [Concomitant]
  10. AVALIDE [Concomitant]
  11. PROZAC [Concomitant]
  12. PAXIL [Concomitant]
  13. FLEXERIL [Concomitant]
  14. ALBUTEROL [Concomitant]
  15. ANTIVERT [Concomitant]
  16. CPAP [Concomitant]

REACTIONS (4)
  - COMA [None]
  - MENTAL STATUS CHANGES [None]
  - PCO2 ABNORMAL [None]
  - SEDATION [None]
